FAERS Safety Report 9539507 (Version 1)
Quarter: 2013Q2

REPORT INFORMATION
  Report Type: Spontaneous
  Country: US (occurrence: None)
  Receive Date: 20130521
  Receipt Date: 20130521
  Transmission Date: 20140414
  Serious: No
  Sender: FDA-Public Use
  Company Number: 1000043929

PATIENT
  Age: 64 Year
  Sex: Male

DRUGS (10)
  1. TUDORZA PRESSAIR (ACLIDINIUM BROMIDE) (400 MICROGRAM, POWDER) [Suspect]
     Indication: CHRONIC OBSTRUCTIVE PULMONARY DISEASE
     Dosage: 400 MCG BID (400 MCG, 2 IN 1 D), RESPIRATORY (INHALATION)
     Route: 055
     Dates: start: 20130429
  2. ADVAIR (SERETIDE) (SERETIDE) [Concomitant]
  3. PRILOSEC (OMEPRAZOLE) (OMEPRAZOLE) [Concomitant]
  4. LEXAPRO (ESCITALOPRAM OXALATE) (ESCITALOPRAM OXALATE) [Concomitant]
  5. CELEBREX (CELECOXIB) (CELECOXIB) [Concomitant]
  6. ZYRTEC (CETIRIZINE HYDROCHLORIDE) (CETIRIZINE HYDROCHLORIDE)? [Concomitant]
  7. AZOR (AMLODIPINE, OLMESARTAN) (AMLODIPINE, OLMESARTAN)? [Concomitant]
  8. HYTRIN (TERAZOSIN HYDROCHLORIDE) (TERAZOSIN HYDROCHLORIDE)? [Concomitant]
  9. VITAMIN D (VITAMIN D) (VITAMIN D) [Concomitant]
  10. DUONEB (COMBIVENT) (COMBIVENT) [Concomitant]

REACTIONS (2)
  - Cough [None]
  - Throat irritation [None]
